FAERS Safety Report 12428043 (Version 1)
Quarter: 2016Q2

REPORT INFORMATION
  Report Type: Spontaneous
  Country: US (occurrence: None)
  Receive Date: 20160601
  Receipt Date: 20160601
  Transmission Date: 20160815
  Serious: Yes (Disabling)
  Sender: FDA-Public Use
  Company Number: None

PATIENT
  Age: 61 Year
  Sex: Male
  Weight: 77.11 kg

DRUGS (6)
  1. MULTI-VITAMIN/MINERAL TABLET [Concomitant]
  2. PROPAFENONE, 300 MG [Suspect]
     Active Substance: PROPAFENONE
     Indication: ATRIAL FLUTTER
     Route: 048
     Dates: start: 20160214, end: 20160517
  3. METOPROLOL. [Concomitant]
     Active Substance: METOPROLOL
  4. ELIQUIS [Concomitant]
     Active Substance: APIXABAN
  5. LEVOTHYROXINE. [Concomitant]
     Active Substance: LEVOTHYROXINE
  6. LIPITOR [Concomitant]
     Active Substance: ATORVASTATIN CALCIUM

REACTIONS (2)
  - Ataxia [None]
  - Balance disorder [None]

NARRATIVE: CASE EVENT DATE: 20160220
